FAERS Safety Report 10482985 (Version 1)
Quarter: 2014Q3

REPORT INFORMATION
  Report Type: Spontaneous
  Country: BR (occurrence: BR)
  Receive Date: 20140929
  Receipt Date: 20140929
  Transmission Date: 20150326
  Serious: Yes (Death)
  Sender: FDA-Public Use
  Company Number: PHHY2014BR124447

PATIENT
  Sex: Female
  Weight: 50 kg

DRUGS (4)
  1. PROLOPA [Concomitant]
     Active Substance: BENSERAZIDE\LEVODOPA
     Indication: PARKINSON^S DISEASE
  2. QUETIAPINE [Suspect]
     Active Substance: QUETIAPINE
     Indication: SLEEP DISORDER
     Dosage: 2 DF, QD (TWO TABLETS AT NIGHT)
     Route: 048
  3. PROLOPA HBS [Concomitant]
     Indication: PARKINSON^S DISEASE
  4. MIRTAZAPINE. [Suspect]
     Active Substance: MIRTAZAPINE
     Indication: DEPRESSION
     Dosage: 1 DF, QHS  (ONE TABLET IN THE EVENING)
     Route: 048

REACTIONS (4)
  - Septic shock [Fatal]
  - Parkinson^s disease [Fatal]
  - Pneumonia [Fatal]
  - Agitation [Unknown]
